FAERS Safety Report 4741636-8 (Version None)
Quarter: 2005Q3

REPORT INFORMATION
  Report Type: 
  Country: None (occurrence: None)
  Receive Date: 20050808
  Receipt Date: 20050725
  Transmission Date: 20060218
  Serious: Yes (Other)
  Sender: FDA-Public Use
  Company Number: EWC050745189

PATIENT
  Age: 71 Year
  Sex: Male

DRUGS (5)
  1. TADALAFIL [Suspect]
     Indication: ERECTILE DYSFUNCTION
     Dosage: 20MG/1 DAY
     Dates: start: 20050101, end: 20050724
  2. INDAPAMIDE [Concomitant]
  3. CARVEDILOL [Concomitant]
  4. TAMSULOSIN [Concomitant]
  5. ASPIRIN [Concomitant]

REACTIONS (1)
  - HAEMATOSPERMIA [None]
